FAERS Safety Report 4451973-2 (Version None)
Quarter: 2004Q3

REPORT INFORMATION
  Report Type: 
  Country: None (occurrence: None)
  Receive Date: 20040915
  Receipt Date: 20040915
  Transmission Date: 20050211
  Serious: Yes (Hospitalization)
  Sender: FDA-Public Use
  Company Number: None

PATIENT
  Age: 84 Year
  Sex: Female
  Weight: 62.2789 kg

DRUGS (15)
  1. FUROSEMIDE [Suspect]
     Indication: DIURETIC THERAPY
     Dosage: 40MG IV Q 8H X 2 DAYS THEN 20MG PO BID
     Route: 050
     Dates: start: 20040427, end: 20040506
  2. VANCOMYCIN [Suspect]
     Indication: URINARY TRACT INFECTION STAPHYLOCOCCAL
     Dosage: 1 G IV Q 24 H
     Route: 042
     Dates: start: 20040429, end: 20040503
  3. LOVENOX [Concomitant]
  4. IRON SULFATETHIAMIN COMPOUND TAB [Concomitant]
  5. LASIX [Concomitant]
  6. INSULIN [Concomitant]
  7. PEPCID [Concomitant]
  8. PULMICORT [Concomitant]
  9. THEOPHYLLINE [Concomitant]
  10. MEGACE [Concomitant]
  11. LISINOPRIL [Concomitant]
  12. PREDNISONE [Concomitant]
  13. VANCOMYCIN [Concomitant]
  14. POTASSIUM [Concomitant]
  15. ZOSYN [Concomitant]

REACTIONS (5)
  - ACUTE PRERENAL FAILURE [None]
  - CARDIAC FAILURE CONGESTIVE [None]
  - NEPHRITIS INTERSTITIAL [None]
  - RENAL FAILURE ACUTE [None]
  - RENAL TUBULAR NECROSIS [None]
